FAERS Safety Report 25780781 (Version 1)
Quarter: 2025Q3

REPORT INFORMATION
  Report Type: Spontaneous
  Country: AU (occurrence: AU)
  Receive Date: 20250909
  Receipt Date: 20250909
  Transmission Date: 20251021
  Serious: Yes (Hospitalization)
  Sender: VERTEX
  Company Number: AU-VERTEX PHARMACEUTICALS-2025-014557

PATIENT
  Age: 14 Month
  Sex: Female

DRUGS (9)
  1. IVACAFTOR\LUMACAFTOR [Suspect]
     Active Substance: IVACAFTOR\LUMACAFTOR
     Indication: Cystic fibrosis
     Route: 048
  2. CEFTAZIDIME [Concomitant]
     Active Substance: CEFTAZIDIME
     Route: 042
  3. PIPERACILLIN AND TAZOBACTAM [Concomitant]
     Active Substance: PIPERACILLIN SODIUM\TAZOBACTAM SODIUM
     Route: 042
  4. DORNASE ALFA [Concomitant]
     Active Substance: DORNASE ALFA
  5. TOBRAMYCIN [Concomitant]
     Active Substance: TOBRAMYCIN
     Route: 042
  6. TOBRAMYCIN [Concomitant]
     Active Substance: TOBRAMYCIN
  7. CIPROFLOXACIN [Concomitant]
     Active Substance: CIPROFLOXACIN
     Route: 048
  8. COLISTIN [Concomitant]
     Active Substance: COLISTIN
  9. AZITHROMYCIN [Concomitant]
     Active Substance: AZITHROMYCIN

REACTIONS (4)
  - COVID-19 [Unknown]
  - Lung disorder [Unknown]
  - Bronchiectasis [Unknown]
  - Infective pulmonary exacerbation of cystic fibrosis [Unknown]
